APPROVED DRUG PRODUCT: MYCOPHENOLATE MOFETIL HYDROCHLORIDE
Active Ingredient: MYCOPHENOLATE MOFETIL HYDROCHLORIDE
Strength: 500MG/VIAL
Dosage Form/Route: INJECTABLE;INJECTION
Application: A203575 | Product #001 | TE Code: AP
Applicant: PH HEALTH LTD
Approved: Oct 28, 2016 | RLD: No | RS: No | Type: RX